FAERS Safety Report 5453965-3 (Version None)
Quarter: 2007Q3

REPORT INFORMATION
  Report Type: 
  Country: None (occurrence: None)
  Receive Date: 20070917
  Receipt Date: 20061212
  Transmission Date: 20080115
  Serious: Yes (Disabling)
  Sender: FDA-Public Use
  Company Number: US-ASTRAZENECA-2005UW14279

PATIENT
  Age: 49 Year
  Sex: Female
  Weight: 105.9 kg

DRUGS (4)
  1. SEROQUEL [Suspect]
     Route: 048
     Dates: start: 20020301, end: 20021101
  2. SEROQUEL [Suspect]
     Route: 048
     Dates: start: 20021217
  3. RISPERDAL [Suspect]
     Dates: start: 20001101, end: 20040601
  4. ZYPREXA [Suspect]
     Dates: start: 19991001, end: 20000801

REACTIONS (2)
  - DIABETES MELLITUS [None]
  - PANCREATITIS [None]
